FAERS Safety Report 25318350 (Version 1)
Quarter: 2025Q2

REPORT INFORMATION
  Report Type: Spontaneous
  Country: US (occurrence: US)
  Receive Date: 20250515
  Receipt Date: 20250515
  Transmission Date: 20250716
  Serious: No
  Sender: LABORATOIRES SERB
  Company Number: US-SERB S.A.S.-2176780

PATIENT

DRUGS (1)
  1. AURLUMYN [Suspect]
     Active Substance: ILOPROST
     Indication: Frostbite

REACTIONS (3)
  - Extravasation [Unknown]
  - Product administration interrupted [Unknown]
  - Pain [Unknown]
